FAERS Safety Report 19839953 (Version 1)
Quarter: 2021Q3

REPORT INFORMATION
  Report Type: Spontaneous
  Country: BS (occurrence: BS)
  Receive Date: 20210916
  Receipt Date: 20210916
  Transmission Date: 20211014
  Serious: Yes (Other)
  Sender: FDA-Public Use
  Company Number: BS-CELLTRION INC.-2021BS012648

PATIENT

DRUGS (1)
  1. TRUXIMA [Suspect]
     Active Substance: RITUXIMAB-ABBS
     Indication: B-CELL SMALL LYMPHOCYTIC LYMPHOMA
     Dosage: 100 MILLIGRAM DOSING REGIMEN: 375 MG/M2 (INFUSION TITRATED AT 100 MG/ML)
     Route: 042
     Dates: start: 20210830

REACTIONS (2)
  - Dyspepsia [Recovered/Resolved]
  - Ocular hyperaemia [Recovered/Resolved]

NARRATIVE: CASE EVENT DATE: 20210830
